FAERS Safety Report 19606967 (Version 1)
Quarter: 2021Q3

REPORT INFORMATION
  Report Type: Other
  Country: HR (occurrence: HR)
  Receive Date: 20210726
  Receipt Date: 20210726
  Transmission Date: 20211014
  Serious: Yes (Other)
  Sender: FDA-Public Use
  Company Number: HR-CELLTRION INC.-2021HR009735

PATIENT

DRUGS (2)
  1. REMSIMA [Suspect]
     Active Substance: INFLIXIMAB
     Indication: PRODUCT USED FOR UNKNOWN INDICATION
     Dosage: UNK
     Route: 065
     Dates: start: 20190405, end: 20201020
  2. EBETREXAT [Concomitant]
     Active Substance: METHOTREXATE SODIUM
     Route: 065

REACTIONS (3)
  - Drug specific antibody [Unknown]
  - Drug ineffective [Unknown]
  - Drug level decreased [Unknown]

NARRATIVE: CASE EVENT DATE: 20201215
